FAERS Safety Report 6631795-4 (Version None)
Quarter: 2010Q1

REPORT INFORMATION
  Report Type: 
  Country: None (occurrence: None)
  Receive Date: 20100312
  Receipt Date: 20100303
  Transmission Date: 20100710
  Serious: Yes (Other)
  Sender: FDA-Public Use
  Company Number: CH-ASTRAZENECA-2010SE09594

PATIENT
  Age: 0 Week
  Sex: Male

DRUGS (5)
  1. SEROQUEL [Suspect]
  2. METHADONE HYDROCHLORIDE [Suspect]
  3. DIAMORPHINE [Suspect]
  4. TEMESTA [Suspect]
     Dosage: AS NECESSARY
  5. CYMBALTA [Suspect]

REACTIONS (4)
  - DRUG EXPOSURE DURING PREGNANCY [None]
  - DRUG WITHDRAWAL SYNDROME NEONATAL [None]
  - FOETAL GROWTH RETARDATION [None]
  - HYPOGLYCAEMIA NEONATAL [None]
